FAERS Safety Report 20714966 (Version 2)
Quarter: 2022Q2

REPORT INFORMATION
  Report Type: Spontaneous
  Country: FR (occurrence: None)
  Receive Date: 20220415
  Receipt Date: 20220429
  Transmission Date: 20220721
  Serious: Yes (Other)
  Sender: FDA-Public Use
  Company Number: 2022A147981

PATIENT
  Age: 77 Year
  Sex: Female
  Weight: 78 kg

DRUGS (7)
  1. DAPAGLIFLOZIN [Suspect]
     Active Substance: DAPAGLIFLOZIN
     Indication: Diabetes mellitus
     Route: 048
     Dates: start: 202111
  2. XIGDUO XR [Suspect]
     Active Substance: DAPAGLIFLOZIN PROPANEDIOL\METFORMIN HYDROCHLORIDE
     Indication: Diabetes mellitus
     Dosage: 5/1000 MG
     Route: 048
  3. TRULLICITY [Concomitant]
     Route: 065
  4. PRAVASTATIN [Concomitant]
     Active Substance: PRAVASTATIN
     Dosage: 20 AT 1 DAILY
     Route: 065
  5. DULAGLUTIDE [Concomitant]
     Active Substance: DULAGLUTIDE
     Dosage: 1,5 AT 1 PER WEEK
     Route: 065
  6. LOSARTAN [Concomitant]
     Active Substance: LOSARTAN
     Dosage: 50 AT 1 DAILY
     Route: 065
  7. SOTALOL [Concomitant]
     Active Substance: SOTALOL
     Dosage: 80 AT 2 PER DAY
     Route: 065

REACTIONS (6)
  - Weight decreased [Recovered/Resolved]
  - Decreased appetite [Unknown]
  - Vulvitis [Unknown]
  - Urinary tract discomfort [Unknown]
  - Dysuria [Unknown]
  - Bacterial vaginosis [Unknown]

NARRATIVE: CASE EVENT DATE: 20220207
